FAERS Safety Report 13956944 (Version 1)
Quarter: 2017Q3

REPORT INFORMATION
  Report Type: Spontaneous
  Country: BR (occurrence: BR)
  Receive Date: 20170911
  Receipt Date: 20170911
  Transmission Date: 20171128
  Serious: Yes (Hospitalization, Other)
  Sender: FDA-Public Use
  Company Number: BR-ASTRAZENECA-2017SE91395

PATIENT
  Age: 56 Year
  Sex: Male

DRUGS (4)
  1. OXYCONTIN [Concomitant]
     Active Substance: OXYCODONE HYDROCHLORIDE
     Indication: PAIN
  2. TAGRISSO [Suspect]
     Active Substance: OSIMERTINIB
     Indication: ADENOCARCINOMA
     Route: 048
     Dates: start: 201708, end: 201708
  3. DECADRON [Concomitant]
     Active Substance: DEXAMETHASONE
     Dosage: LOW DOSAGES
  4. TAGRISSO [Suspect]
     Active Substance: OSIMERTINIB
     Indication: ADENOCARCINOMA
     Route: 048
     Dates: start: 201705, end: 201708

REACTIONS (3)
  - Lung infection [Not Recovered/Not Resolved]
  - Pancreatitis acute [Not Recovered/Not Resolved]
  - Pneumonitis [Unknown]

NARRATIVE: CASE EVENT DATE: 201708
